FAERS Safety Report 9540821 (Version 3)
Quarter: 2016Q2

REPORT INFORMATION
  Report Type: Spontaneous
  Country: US (occurrence: US)
  Receive Date: 20130920
  Receipt Date: 20160525
  Transmission Date: 20160815
  Serious: Yes (Hospitalization, Other)
  Sender: FDA-Public Use
  Company Number: US-BAYER-2013-111410

PATIENT
  Age: 22 Year
  Sex: Male

DRUGS (1)
  1. ROMILAR [Suspect]
     Active Substance: DEXTROMETHORPHAN HYDROBROMIDE
     Dosage: 10 DF, UNK
     Route: 048

REACTIONS (5)
  - Acute kidney injury [None]
  - Intentional overdose [None]
  - Drug abuse [None]
  - Nephrolithiasis [None]
  - Ureteric obstruction [None]
